FAERS Safety Report 9138128 (Version 2)
Quarter: 2013Q2

REPORT INFORMATION
  Report Type: Spontaneous
  Country: ZA (occurrence: ZA)
  Receive Date: 20130304
  Receipt Date: 20130516
  Transmission Date: 20140414
  Serious: Yes (Hospitalization)
  Sender: FDA-Public Use
  Company Number: PHHY2013ZA019841

PATIENT
  Sex: Male

DRUGS (1)
  1. RITALINA [Suspect]

REACTIONS (1)
  - Intracranial pressure increased [Unknown]
